FAERS Safety Report 17924137 (Version 1)
Quarter: 2020Q2

REPORT INFORMATION
  Report Type: Spontaneous
  Country: PT (occurrence: PT)
  Receive Date: 20200622
  Receipt Date: 20200622
  Transmission Date: 20200714
  Serious: Yes (Other)
  Sender: FDA-Public Use
  Company Number: PT-TEVA-2020-PT-1788957

PATIENT
  Age: 68 Year
  Sex: Male
  Weight: 120 kg

DRUGS (15)
  1. PROPOFOL. [Concomitant]
     Active Substance: PROPOFOL
  2. NOREPINEPHRINE. [Concomitant]
     Active Substance: NOREPINEPHRINE
  3. AMOXICILINA + ACIDO CLAVULANICO [Concomitant]
     Active Substance: AMOXICILLIN\CLAVULANIC ACID
  4. CLARITHROMYCIN. [Concomitant]
     Active Substance: CLARITHROMYCIN
  5. HYDROCORTISONE. [Concomitant]
     Active Substance: HYDROCORTISONE
  6. HYDROXYCHLOROQUINE [Suspect]
     Active Substance: HYDROXYCHLOROQUINE
     Indication: COVID-19
     Dosage: 200 MG 12 / 12H, UNIT DOSE: 400 MG
     Route: 048
     Dates: start: 20200322, end: 20200329
  7. ROCURONIUM BROMIDE. [Concomitant]
     Active Substance: ROCURONIUM BROMIDE
  8. EPINEPHRINE. [Concomitant]
     Active Substance: EPINEPHRINE
  9. LOPINAVIR + RITONAVIR [Concomitant]
     Active Substance: LOPINAVIR\RITONAVIR
  10. MIDAZOLAM. [Concomitant]
     Active Substance: MIDAZOLAM
  11. METOCLOPRAMIDE. [Concomitant]
     Active Substance: METOCLOPRAMIDE
  12. PARACETAMOL [Concomitant]
     Active Substance: ACETAMINOPHEN
  13. ESOMEPRAZOLE. [Concomitant]
     Active Substance: ESOMEPRAZOLE MAGNESIUM
  14. MORPHINE [Concomitant]
     Active Substance: MORPHINE
  15. ENOXAPARIN SODIUM. [Concomitant]
     Active Substance: ENOXAPARIN SODIUM

REACTIONS (2)
  - COVID-19 treatment [Recovered/Resolved]
  - Impaired gastric emptying [Recovered/Resolved]

NARRATIVE: CASE EVENT DATE: 20200322
